FAERS Safety Report 7495180-8 (Version None)
Quarter: 2011Q2

REPORT INFORMATION
  Report Type: 
  Country: None (occurrence: None)
  Receive Date: 20110520
  Receipt Date: 20110509
  Transmission Date: 20111010
  Serious: Yes (Other)
  Sender: FDA-Public Use
  Company Number: CA-GENENTECH-318819

PATIENT
  Sex: Female

DRUGS (5)
  1. ADVAIR DISKUS 100/50 [Concomitant]
     Indication: PRODUCT USED FOR UNKNOWN INDICATION
  2. VENTOLIN [Concomitant]
     Indication: PRODUCT USED FOR UNKNOWN INDICATION
  3. XOLAIR [Suspect]
     Indication: ASTHMA
     Dosage: 375 MG, Q2W
     Route: 058
     Dates: start: 20110210
  4. ALVESCO [Concomitant]
     Indication: PRODUCT USED FOR UNKNOWN INDICATION
  5. SPIRIVA [Concomitant]
     Indication: PRODUCT USED FOR UNKNOWN INDICATION

REACTIONS (12)
  - ASTHMA [None]
  - GINGIVAL INFECTION [None]
  - INFLUENZA [None]
  - SOMNOLENCE [None]
  - ASTHENIA [None]
  - HEADACHE [None]
  - DIZZINESS [None]
  - GALLBLADDER ENLARGEMENT [None]
  - FATIGUE [None]
  - NASOPHARYNGITIS [None]
  - REFLUX GASTRITIS [None]
  - CHEST DISCOMFORT [None]
